FAERS Safety Report 8377669-2 (Version None)
Quarter: 2012Q2

REPORT INFORMATION
  Report Type: 
  Country: None (occurrence: None)
  Receive Date: 20120522
  Receipt Date: 20120517
  Transmission Date: 20120825
  Serious: Yes (Hospitalization)
  Sender: FDA-Public Use
  Company Number: US-GLAXOSMITHKLINE-A0744742A

PATIENT
  Age: 49 Year
  Sex: Male
  Weight: 97.7 kg

DRUGS (12)
  1. AVANDIA [Suspect]
     Indication: TYPE 2 DIABETES MELLITUS
     Dosage: 8MG TWICE PER DAY
     Route: 048
     Dates: start: 20050706, end: 20060101
  2. METFORMIN HCL [Concomitant]
     Dates: start: 20050101
  3. LOTREL [Concomitant]
  4. PREVACID [Concomitant]
  5. GLUCOTROL [Concomitant]
  6. LOTENSIN [Concomitant]
  7. TRICOR [Concomitant]
  8. NEURONTIN [Concomitant]
  9. AVANDAMET [Suspect]
     Indication: TYPE 2 DIABETES MELLITUS
     Route: 048
  10. ACTOS [Concomitant]
     Indication: PRODUCT USED FOR UNKNOWN INDICATION
     Route: 065
     Dates: start: 20060101
  11. INSULIN [Concomitant]
  12. LORAZEPAM [Concomitant]

REACTIONS (4)
  - ACUTE CORONARY SYNDROME [None]
  - CARDIAC FAILURE CONGESTIVE [None]
  - MUSCULOSKELETAL DISORDER [None]
  - ANGINA PECTORIS [None]
